FAERS Safety Report 9153713 (Version 1)
Quarter: 2013Q1

REPORT INFORMATION
  Report Type: Spontaneous
  Country: US (occurrence: US)
  Receive Date: 20130311
  Receipt Date: 20130311
  Transmission Date: 20140127
  Serious: Yes (Hospitalization)
  Sender: FDA-Public Use
  Company Number: US-MYLANLABS-2013S1004294

PATIENT
  Age: 62 Year
  Sex: Male

DRUGS (3)
  1. TRAMADOL [Suspect]
     Indication: MUSCULOSKELETAL PAIN
     Route: 065
  2. BUPROPION [Interacting]
     Indication: MAJOR DEPRESSION
     Route: 065
  3. CITALOPRAM [Interacting]
     Indication: MAJOR DEPRESSION
     Dosage: 40MG
     Route: 065

REACTIONS (2)
  - Serotonin syndrome [Recovered/Resolved]
  - Drug interaction [Recovered/Resolved]
